FAERS Safety Report 5502596-5 (Version None)
Quarter: 2007Q4

REPORT INFORMATION
  Report Type: 
  Country: None (occurrence: None)
  Receive Date: 20071031
  Receipt Date: 20071022
  Transmission Date: 20080405
  Serious: No
  Sender: FDA-Public Use
  Company Number: PHBS2007IT15580

PATIENT
  Age: 68 Year
  Sex: Female

DRUGS (10)
  1. ZOMETA [Suspect]
     Indication: METASTASES TO BONE
     Dosage: 4 MG, QMO
     Route: 042
     Dates: start: 20050101, end: 20071018
  2. ARIMIDEX [Concomitant]
     Dates: start: 20050101
  3. CAPECITABINE [Concomitant]
     Dates: start: 20060301
  4. VINORELBINE [Concomitant]
     Dates: start: 20060701
  5. TAXOL [Concomitant]
     Dates: start: 20070401
  6. FEC [Concomitant]
     Dates: start: 20070601
  7. FLUOROURACIL [Concomitant]
     Indication: BREAST CANCER
     Dosage: 125 MG, UNK
     Route: 042
     Dates: start: 20051001, end: 20071018
  8. EPIRUBICIN [Concomitant]
     Indication: BREAST CANCER
     Dosage: 830 MG, UNK
     Route: 042
     Dates: start: 20051001, end: 20071001
  9. ENDOXAN [Concomitant]
     Indication: BREAST CANCER
     Dosage: 830 MG, UNK
     Route: 042
     Dates: start: 20051001, end: 20071018
  10. MS CONTIN [Concomitant]
     Indication: BREAST CANCER
     Dosage: 20 MG, UNK
     Route: 048
     Dates: start: 20051001, end: 20071001

REACTIONS (1)
  - METRORRHAGIA [None]
